FAERS Safety Report 11872114 (Version 4)
Quarter: 2016Q1

REPORT INFORMATION
  Report Type: Report from Study
  Country: US (occurrence: US)
  Receive Date: 20151228
  Receipt Date: 20160125
  Transmission Date: 20160526
  Serious: Yes (Hospitalization)
  Sender: FDA-Public Use
  Company Number: US-GILEAD-2015-0189834

PATIENT
  Age: 36 Year
  Sex: Female

DRUGS (4)
  1. FLOLAN [Suspect]
     Active Substance: EPOPROSTENOL SODIUM
     Dosage: 116 NG/KG/MIN
     Route: 065
  2. REVATIO [Suspect]
     Active Substance: SILDENAFIL CITRATE
     Indication: PRODUCT USED FOR UNKNOWN INDICATION
     Route: 065
  3. FLOLAN [Suspect]
     Active Substance: EPOPROSTENOL SODIUM
     Indication: PRODUCT USED FOR UNKNOWN INDICATION
     Dosage: 116 NG/KG/MIN
     Route: 065
  4. AMBRISENTAN [Suspect]
     Active Substance: AMBRISENTAN
     Indication: PULMONARY ARTERIAL HYPERTENSION
     Dosage: 5 MG, QD
     Route: 065
     Dates: start: 20151218

REACTIONS (3)
  - Tachycardia [Unknown]
  - Weight decreased [Unknown]
  - Hypovolaemia [Unknown]

NARRATIVE: CASE EVENT DATE: 20151220
